FAERS Safety Report 6030345-3 (Version None)
Quarter: 2009Q1

REPORT INFORMATION
  Report Type: 
  Country: None (occurrence: None)
  Receive Date: 20090106
  Receipt Date: 20090106
  Transmission Date: 20090719
  Serious: No
  Sender: FDA-Public Use
  Company Number: None

PATIENT
  Age: 65 Year
  Sex: Male
  Weight: 118.8424 kg

DRUGS (3)
  1. LOVENOX [Suspect]
     Indication: DEEP VEIN THROMBOSIS
     Dosage: 120MG Q12H SQ
     Route: 058
     Dates: start: 20080319, end: 20080324
  2. COUMADIN [Concomitant]
  3. TORADOL [Concomitant]

REACTIONS (6)
  - MASS [None]
  - MENINGEAL DISORDER [None]
  - NUCLEAR MAGNETIC RESONANCE IMAGING BRAIN ABNORMAL [None]
  - PARAPLEGIA [None]
  - SPINAL CORD COMPRESSION [None]
  - SPINAL EPIDURAL HAEMORRHAGE [None]
